FAERS Safety Report 24874067 (Version 1)
Quarter: 2025Q1

REPORT INFORMATION
  Report Type: Report from Study
  Country: CA (occurrence: CA)
  Receive Date: 20250122
  Receipt Date: 20250122
  Transmission Date: 20250409
  Serious: Yes (Other)
  Sender: ALEXION PHARMACEUTICALS
  Company Number: CA-AstraZeneca-CH-00759759A

PATIENT

DRUGS (1)
  1. OLAPARIB [Suspect]
     Active Substance: OLAPARIB
     Indication: Breast cancer
     Dosage: 300 MILLIGRAM, BID

REACTIONS (6)
  - Angina pectoris [Unknown]
  - Myocardial infarction [Unknown]
  - Nausea [Unknown]
  - Palpitations [Unknown]
  - Fatigue [Unknown]
  - Brain fog [Unknown]
